FAERS Safety Report 6269310-X (Version None)
Quarter: 2009Q3

REPORT INFORMATION
  Report Type: 
  Country: None (occurrence: None)
  Receive Date: 20090713
  Receipt Date: 20090703
  Transmission Date: 20100115
  Serious: No
  Sender: FDA-Public Use
  Company Number: B0570200A

PATIENT
  Age: 17 Year
  Sex: Female
  Weight: 64.8644 kg

DRUGS (1)
  1. WELLBUTRIN XL [Suspect]
     Indication: DEPRESSION
     Dosage: 150 MG PER DAY/ ORAL
     Route: 048
     Dates: start: 20090126, end: 20090617

REACTIONS (3)
  - CONDITION AGGRAVATED [None]
  - VISION BLURRED [None]
  - VISUAL IMPAIRMENT [None]
